FAERS Safety Report 5020120-0 (Version None)
Quarter: 2006Q2

REPORT INFORMATION
  Report Type: 
  Country: None (occurrence: None)
  Receive Date: 20060602
  Receipt Date: 20060523
  Transmission Date: 20061013
  Serious: Yes (Life-Threatening, Hospitalization)
  Sender: FDA-Public Use
  Company Number: 2006MP000312

PATIENT
  Age: 71 Year
  Sex: Male

DRUGS (12)
  1. AGGRASTAT [Suspect]
     Indication: ACUTE CORONARY SYNDROME
     Dosage: SEE IMAGE
     Route: 040
     Dates: start: 20060302, end: 20060302
  2. AGGRASTAT [Suspect]
     Indication: ACUTE CORONARY SYNDROME
     Dosage: SEE IMAGE
     Route: 040
     Dates: start: 20060302, end: 20060302
  3. ASPIRIN [Concomitant]
  4. CLEXANE [Concomitant]
  5. DELIX [Concomitant]
  6. MOVICOL [Concomitant]
  7. NITRO [Concomitant]
  8. PANTOZOL [Concomitant]
  9. TORSEMIDE [Concomitant]
  10. ZOCOR [Concomitant]
  11. BISOPROLOL [Concomitant]
  12. RADIOGRAPHIC CONTRAST MEDIUM [Concomitant]

REACTIONS (7)
  - ANAPHYLACTIC SHOCK [None]
  - BLOOD BILIRUBIN INCREASED [None]
  - BLOOD LACTATE DEHYDROGENASE INCREASED [None]
  - GENERAL PHYSICAL HEALTH DETERIORATION [None]
  - HYPOXIA [None]
  - LIVER DISORDER [None]
  - SOMNOLENCE [None]
